FAERS Safety Report 19956030 (Version 2)
Quarter: 2021Q4

REPORT INFORMATION
  Report Type: Spontaneous
  Country: CN (occurrence: CN)
  Receive Date: 20211014
  Receipt Date: 20211103
  Transmission Date: 20220303
  Serious: No
  Sender: FDA-Public Use
  Company Number: CN-NOVARTISPH-NVSC2021CN231960

PATIENT
  Sex: Male

DRUGS (6)
  1. TRAVATAN [Suspect]
     Active Substance: TRAVOPROST
     Indication: Ocular hypertension
     Dosage: UNK, QD (ONCE EVERY NIGHT)
     Route: 065
  2. TRAVATAN [Suspect]
     Active Substance: TRAVOPROST
     Dosage: UNK, QD  (ONCE EVERY NIGHT)
     Route: 047
     Dates: start: 20210615
  3. TRAVATAN [Suspect]
     Active Substance: TRAVOPROST
     Dosage: UNK, QD  (ONCE EVERY NIGHT)
     Route: 047
     Dates: start: 20210927
  4. TRAVATAN [Suspect]
     Active Substance: TRAVOPROST
     Dosage: UNK, QD  (ONCE EVERY NIGHT)
     Route: 047
     Dates: start: 20211015
  5. AZOPT [Suspect]
     Active Substance: BRINZOLAMIDE
     Indication: Ocular hypertension
     Dosage: 1 DRP BID (DOSE AT ONE DROP IN THE MORNING AND ONE DROP IN THE EVENING)
     Route: 047
     Dates: start: 202104
  6. CARTEOLOL HYDROCHLORIDE [Concomitant]
     Active Substance: CARTEOLOL HYDROCHLORIDE
     Indication: Ocular hypertension
     Route: 047

REACTIONS (3)
  - Eye pruritus [Recovering/Resolving]
  - Eye swelling [Recovering/Resolving]
  - Drug ineffective [Unknown]
